FAERS Safety Report 10227143 (Version 1)
Quarter: 2014Q2

REPORT INFORMATION
  Report Type: Spontaneous
  Country: US (occurrence: US)
  Receive Date: 20140610
  Receipt Date: 20140610
  Transmission Date: 20141212
  Serious: Yes (Hospitalization)
  Sender: FDA-Public Use
  Company Number: US-TEVA-486244USA

PATIENT
  Age: 17 Year
  Sex: Male

DRUGS (10)
  1. CLOZAPINE [Suspect]
     Indication: SCHIZOPHRENIA, PARANOID TYPE
     Dosage: GRADUALLY TITRATED TO 2.25MG PER DAY IN DIVIDED DOSES
     Route: 065
  2. CLONAZEPAM [Suspect]
     Indication: SCHIZOPHRENIA, PARANOID TYPE
     Dosage: INCREASED TO 150MG PER DAY OVER 39 DAYS
     Route: 065
  3. RISPERIDONE [Suspect]
     Dosage: TAPERED OFF
  4. HALOPERIDOL [Suspect]
     Dosage: 8 MILLIGRAM DAILY; GRADUALLY INCREASED
     Route: 065
  5. LORAZEPAM [Suspect]
     Indication: AGITATION
     Dosage: GRADUALLY TITRATED
     Route: 065
  6. CHLORPROMAZINE [Suspect]
     Indication: SCHIZOPHRENIA, PARANOID TYPE
     Dosage: GRADUALLY INCREASED TO 300MG PER DAY IN DIVIDED DOSES OVER 5 DAYS
     Route: 065
  7. VALPROIC ACID [Concomitant]
     Indication: SCHIZOPHRENIA, PARANOID TYPE
     Route: 065
  8. LYSERGIDE [Concomitant]
     Route: 065
  9. PSILOCYBINE [Concomitant]
     Route: 065
  10. OXYCODONE [Concomitant]
     Route: 065

REACTIONS (6)
  - Disinhibition [Unknown]
  - Psychomotor retardation [Unknown]
  - Blunted affect [Unknown]
  - Tachycardia [Recovered/Resolved]
  - Orthostatic hypotension [Unknown]
  - Somnolence [Unknown]
